FAERS Safety Report 5127019-X (Version None)
Quarter: 2006Q4

REPORT INFORMATION
  Report Type: 
  Country: None (occurrence: None)
  Receive Date: 20061013
  Receipt Date: 20061003
  Transmission Date: 20070319
  Serious: Yes (Hospitalization)
  Sender: FDA-Public Use
  Company Number: FR-GLAXOSMITHKLINE-B0441260A

PATIENT
  Age: 7 Month
  Sex: Male
  Weight: 9 kg

DRUGS (5)
  1. RETROVIR [Suspect]
     Indication: ANTIVIRAL PROPHYLAXIS
     Dosage: 8MGK THREE TIMES PER DAY
     Route: 048
  2. VIDEX [Suspect]
     Indication: ANTIVIRAL PROPHYLAXIS
     Dosage: 7MGD PER DAY
     Route: 048
  3. RETROVIR [Concomitant]
     Indication: HIV INFECTION
  4. VIDEX [Concomitant]
     Indication: HIV INFECTION
  5. BACTRIM [Concomitant]

REACTIONS (4)
  - BLOOD LACTIC ACID INCREASED [None]
  - DRUG EXPOSURE DURING PREGNANCY [None]
  - MACROCEPHALY [None]
  - NEUTROPENIA [None]
